FAERS Safety Report 7676343-5 (Version None)
Quarter: 2011Q3

REPORT INFORMATION
  Report Type: 
  Country: None (occurrence: None)
  Receive Date: 20110811
  Receipt Date: 20110809
  Transmission Date: 20111222
  Serious: Yes (Other)
  Sender: FDA-Public Use
  Company Number: US-PFIZER INC-2011183253

PATIENT
  Sex: Male
  Weight: 51.701 kg

DRUGS (12)
  1. TYLENOL-500 [Concomitant]
     Dosage: UNK
  2. VESICARE [Concomitant]
     Dosage: UNK
  3. PLAVIX [Concomitant]
     Dosage: UNK
  4. ZETIA [Concomitant]
     Dosage: UNK
  5. DILTIAZEM [Concomitant]
     Dosage: UNK
  6. HYDROCODONE [Concomitant]
     Dosage: UNK
  7. KLONOPIN [Concomitant]
     Dosage: UNK
  8. DIGOXIN [Concomitant]
     Dosage: UNK
  9. GLIPIZIDE [Concomitant]
     Dosage: UNK
  10. LIPITOR [Suspect]
     Indication: HYPERLIPIDAEMIA
     Dosage: 10 MG, 1X/DAY
     Route: 048
     Dates: end: 20110807
  11. PROZAC [Concomitant]
     Dosage: UNK
  12. METFORMIN [Concomitant]
     Dosage: UNK

REACTIONS (1)
  - RHABDOMYOLYSIS [None]
